FAERS Safety Report 6485272-4 (Version None)
Quarter: 2009Q4

REPORT INFORMATION
  Report Type: 
  Country: None (occurrence: None)
  Receive Date: 20091209
  Receipt Date: 20091204
  Transmission Date: 20100525
  Serious: Yes (Other)
  Sender: FDA-Public Use
  Company Number: BE-MERCK-0911BEL00011

PATIENT
  Age: 79 Year
  Sex: Female
  Weight: 72 kg

DRUGS (5)
  1. ZOCOR [Suspect]
     Indication: HYPERCHOLESTEROLAEMIA
     Route: 048
     Dates: start: 20040909, end: 20090527
  2. FLECAINIDE ACETATE [Concomitant]
     Indication: ARRHYTHMIA
     Route: 048
     Dates: start: 20070701
  3. ASPIRIN [Concomitant]
     Indication: ARRHYTHMIA
     Route: 048
     Dates: start: 20070701
  4. BISOPROLOL [Suspect]
     Indication: ARRHYTHMIA
     Route: 048
     Dates: start: 20090510
  5. PERINDOPRIL ARGININE [Concomitant]
     Indication: HYPERTENSION
     Route: 048
     Dates: start: 20070701

REACTIONS (1)
  - HEPATITIS TOXIC [None]
